FAERS Safety Report 6122704-5 (Version None)
Quarter: 2009Q1

REPORT INFORMATION
  Report Type: 
  Country: None (occurrence: None)
  Receive Date: 20090318
  Receipt Date: 20090309
  Transmission Date: 20090719
  Serious: Yes (Hospitalization)
  Sender: FDA-Public Use
  Company Number: CA-JNJFOC-20090302613

PATIENT
  Sex: Female
  Weight: 93 kg

DRUGS (1)
  1. REMICADE [Suspect]
     Indication: CROHN'S DISEASE
     Dosage: START OF THERAPY ABOUT 2-3 YEARS AGO TO PRESENT
     Route: 042

REACTIONS (2)
  - OVARIAN CYST RUPTURED [None]
  - SINUSITIS [None]
